FAERS Safety Report 5179441-3 (Version None)
Quarter: 2006Q4

REPORT INFORMATION
  Report Type: 
  Country: None (occurrence: None)
  Receive Date: 20061219
  Receipt Date: 20061213
  Transmission Date: 20070319
  Serious: Yes (Other)
  Sender: FDA-Public Use
  Company Number: US-ALLERGAN-0608546US

PATIENT

DRUGS (1)
  1. ZYMAR [Suspect]
     Indication: POSTOPERATIVE CARE
     Route: 047

REACTIONS (1)
  - ENDOPHTHALMITIS [None]
